FAERS Safety Report 4318678-X (Version None)
Quarter: 2004Q1

REPORT INFORMATION
  Report Type: 
  Country: None (occurrence: None)
  Receive Date: 20040315
  Receipt Date: 20040302
  Transmission Date: 20041129
  Serious: Yes (Life-Threatening)
  Sender: FDA-Public Use
  Company Number: JP-JNJFOC-20040203455

PATIENT
  Age: 71 Year
  Sex: Female

DRUGS (8)
  1. LEVOFLOXACIN [Suspect]
     Indication: GASTROENTERITIS
     Dosage: 300 MG, 1 IN 1 DAY, ORAL
     Route: 048
     Dates: start: 20040105, end: 20040107
  2. AMARYL [Suspect]
     Indication: DIABETES MELLITUS
     Dosage: 6 MG, ORAL
     Route: 048
  3. KINEDAK (EPALRESTAT) [Concomitant]
  4. TAGAMET [Concomitant]
  5. GASLON N (IRSOGLADINE MALEATE) [Concomitant]
  6. BUFFERIN [Concomitant]
  7. LEBENIN (LEBENIN) [Concomitant]
  8. METHYCOBAL (MECOBALAMIN) [Concomitant]

REACTIONS (6)
  - DIZZINESS [None]
  - DRUG INTERACTION [None]
  - DYSSTASIA [None]
  - HYPOAESTHESIA [None]
  - HYPOGLYCAEMIA [None]
  - PALLOR [None]
